FAERS Safety Report 23710523 (Version 1)
Quarter: 2024Q2

REPORT INFORMATION
  Report Type: Report from Study
  Country: US (occurrence: US)
  Receive Date: 20240405
  Receipt Date: 20240405
  Transmission Date: 20240716
  Serious: Yes (Other)
  Sender: FDA-Public Use
  Company Number: US-ABBVIE-5705598

PATIENT
  Age: 32 Year
  Sex: Female

DRUGS (2)
  1. HUMIRA [Suspect]
     Active Substance: ADALIMUMAB
     Indication: Hidradenitis
     Route: 058
  2. HUMIRA [Suspect]
     Active Substance: ADALIMUMAB
     Dosage: DAY 1
     Route: 058
     Dates: start: 20230503, end: 20230503

REACTIONS (10)
  - Surgery [Unknown]
  - Swollen tongue [Recovered/Resolved]
  - Injection site erythema [Recovered/Resolved with Sequelae]
  - Paralysis [Recovered/Resolved]
  - Injection site erythema [Recovered/Resolved with Sequelae]
  - Unresponsive to stimuli [Recovered/Resolved]
  - Injection site pruritus [Recovered/Resolved with Sequelae]
  - Injection site swelling [Recovered/Resolved with Sequelae]
  - Movement disorder [Unknown]
  - Injection site reaction [Unknown]

NARRATIVE: CASE EVENT DATE: 20240216
